FAERS Safety Report 12972032 (Version 2)
Quarter: 2016Q4

REPORT INFORMATION
  Report Type: Spontaneous
  Country: US (occurrence: US)
  Receive Date: 20161124
  Receipt Date: 20161130
  Transmission Date: 20170207
  Serious: Yes (Other)
  Sender: FDA-Public Use
  Company Number: US-HORIZON-ACT-0276-2016

PATIENT
  Age: 30 Year
  Sex: Male

DRUGS (2)
  1. ACTIMMUNE [Suspect]
     Active Substance: INTERFERON GAMMA-1B
     Indication: OSTEOPETROSIS
  2. TYLENOL [Concomitant]
     Active Substance: ACETAMINOPHEN

REACTIONS (5)
  - Influenza like illness [Unknown]
  - Pain [Unknown]
  - Sinusitis [Unknown]
  - Pyrexia [Unknown]
  - Osteomyelitis [Unknown]

NARRATIVE: CASE EVENT DATE: 201508
